FAERS Safety Report 17777582 (Version 1)
Quarter: 2020Q2

REPORT INFORMATION
  Report Type: Spontaneous
  Country: US (occurrence: US)
  Receive Date: 20200513
  Receipt Date: 20200513
  Transmission Date: 20200714
  Serious: No
  Sender: FDA-Public Use
  Company Number: US-BIODELIVERY SCIENCES INTERNATIONAL-2020BDSI0146

PATIENT
  Age: 53 Year
  Sex: Female
  Weight: 118.04 kg

DRUGS (4)
  1. BUPRENORPHINE. [Suspect]
     Active Substance: BUPRENORPHINE
     Indication: PAIN
     Route: 002
     Dates: start: 20200214, end: 202002
  2. PARACETAMOL/OXYCODONE HYDROCHLORIDE [Concomitant]
     Active Substance: ACETAMINOPHEN\OXYCODONE HYDROCHLORIDE
     Indication: PRODUCT USED FOR UNKNOWN INDICATION
     Dosage: UNKNOWN; UNKNOWN
  3. CLOBETASOL [Concomitant]
     Active Substance: CLOBETASOL
     Dosage: IN THE FORMS OF AN UNSPECIFIED SOLUTION. UNKNOWN; UNKNOWN
     Route: 050
  4. CLOBETASOL [Concomitant]
     Active Substance: CLOBETASOL
     Indication: PSORIASIS
     Dosage: IN THE FORMS OF AN UNSPECIFIED CREAM. UNKNOWN; UNKNOWN
     Route: 061

REACTIONS (2)
  - Product solubility abnormal [Unknown]
  - Wrong technique in product usage process [Unknown]

NARRATIVE: CASE EVENT DATE: 202002
